FAERS Safety Report 6399398-7 (Version None)
Quarter: 2009Q4

REPORT INFORMATION
  Report Type: 
  Country: None (occurrence: None)
  Receive Date: 20091014
  Receipt Date: 20091002
  Transmission Date: 20100525
  Serious: Yes (Hospitalization)
  Sender: FDA-Public Use
  Company Number: NL-AMGEN-US368302

PATIENT
  Sex: Female

DRUGS (1)
  1. ENBREL [Suspect]
     Indication: PSORIASIS
     Route: 058
     Dates: start: 20071218

REACTIONS (7)
  - DIZZINESS [None]
  - HYSTERECTOMY [None]
  - INFLUENZA [None]
  - MENORRHAGIA [None]
  - NASOPHARYNGITIS [None]
  - PHARYNGITIS [None]
  - UTERINE POLYP [None]
